FAERS Safety Report 18644163 (Version 1)
Quarter: 2020Q4

REPORT INFORMATION
  Report Type: Spontaneous
  Country: US (occurrence: US)
  Receive Date: 20201221
  Receipt Date: 20201221
  Transmission Date: 20210114
  Serious: Yes (Hospitalization, Disabling, Other)
  Sender: FDA-Public Use
  Company Number: US-PURDUE-USA-2020-0180433

PATIENT
  Sex: Male

DRUGS (3)
  1. MS CONTIN [Suspect]
     Active Substance: MORPHINE SULFATE
     Indication: PAIN
     Route: 048
  2. OXYCONTIN [Suspect]
     Active Substance: OXYCODONE HYDROCHLORIDE
     Indication: PAIN
     Route: 048
  3. DILAUDID [Suspect]
     Active Substance: HYDROMORPHONE HYDROCHLORIDE
     Indication: PAIN
     Route: 048

REACTIONS (7)
  - Endocarditis [Unknown]
  - Drug dependence [Unknown]
  - Drug abuse [Unknown]
  - Injury [Unknown]
  - Bacterial infection [Unknown]
  - Cardiac infection [Unknown]
  - Mental disorder [Unknown]

NARRATIVE: CASE EVENT DATE: 201912
